FAERS Safety Report 24397993 (Version 2)
Quarter: 2024Q4

REPORT INFORMATION
  Report Type: Spontaneous
  Country: US (occurrence: US)
  Receive Date: 20241004
  Receipt Date: 20241029
  Transmission Date: 20250115
  Serious: No
  Sender: NOVARTIS
  Company Number: US-002147023-NVSC2024US196465

PATIENT
  Sex: Male
  Weight: 109 kg

DRUGS (1)
  1. PLUVICTO [Suspect]
     Active Substance: LUTETIUM LU-177 VIPIVOTIDE TETRAXETAN
     Indication: Product used for unknown indication
     Dosage: UNK (1EVERY 4 WEEKS)
     Route: 042
     Dates: start: 20241017, end: 20241017

REACTIONS (2)
  - General physical health deterioration [Not Recovered/Not Resolved]
  - Disease progression [Unknown]
